FAERS Safety Report 7694226-1 (Version None)
Quarter: 2011Q3

REPORT INFORMATION
  Report Type: 
  Country: None (occurrence: None)
  Receive Date: 20110819
  Receipt Date: 20110224
  Transmission Date: 20111222
  Serious: Yes (Hospitalization)
  Sender: FDA-Public Use
  Company Number: US-GLAXOSMITHKLINE-A0915695A

PATIENT
  Age: 74 Year
  Sex: Male

DRUGS (1)
  1. AVANDIA [Suspect]
     Indication: DIABETES MELLITUS
     Dosage: 8MG PER DAY
     Route: 048
     Dates: start: 20000201, end: 20040501

REACTIONS (10)
  - TACHYCARDIA [None]
  - HYPERLIPIDAEMIA [None]
  - IMPLANTABLE DEFIBRILLATOR INSERTION [None]
  - CORONARY ARTERY DISEASE [None]
  - PAIN [None]
  - FATIGUE [None]
  - ASTHENIA [None]
  - CATHETERISATION CARDIAC [None]
  - ISCHAEMIC CARDIOMYOPATHY [None]
  - CARDIAC FAILURE CONGESTIVE [None]
